FAERS Safety Report 18914498 (Version 1)
Quarter: 2021Q1

REPORT INFORMATION
  Report Type: Spontaneous
  Country: AU (occurrence: AU)
  Receive Date: 20210218
  Receipt Date: 20210218
  Transmission Date: 20210420
  Serious: No
  Sender: FDA-Public Use
  Company Number: AU-JAZZ-2020-AU-018244

PATIENT
  Age: 77 Year
  Sex: Male
  Weight: 79 kg

DRUGS (4)
  1. ZEPZELCA [Suspect]
     Active Substance: LURBINECTEDIN
     Indication: SMALL CELL LUNG CANCER
     Dosage: 6.3 MILLIGRAM Q3W
     Route: 042
     Dates: start: 20200806, end: 20200806
  2. ZEPZELCA [Suspect]
     Active Substance: LURBINECTEDIN
     Dosage: 5 MILLIGRAM CYCLE 2
     Route: 042
     Dates: start: 20200827, end: 20200827
  3. ZEPZELCA [Suspect]
     Active Substance: LURBINECTEDIN
     Dosage: 4 MILLIGRAM, CYCLE 3
     Route: 042
     Dates: start: 20200924, end: 20200924
  4. PEGFILGRASTIM [Concomitant]
     Active Substance: PEGFILGRASTIM
     Indication: NEUTROPENIA
     Dosage: 6 MILLIGRAM Q3W
     Dates: start: 20200806

REACTIONS (2)
  - Nausea [Unknown]
  - Fatigue [Recovered/Resolved]

NARRATIVE: CASE EVENT DATE: 20200809
